FAERS Safety Report 9391420 (Version 3)
Quarter: 2013Q3

REPORT INFORMATION
  Report Type: Report from Study
  Country: JP (occurrence: JP)
  Receive Date: 20130709
  Receipt Date: 20130718
  Transmission Date: 20140515
  Serious: Yes (Hospitalization)
  Sender: FDA-Public Use
  Company Number: JP-ASTRAZENECA-2013SE50774

PATIENT
  Age: 25521 Day
  Sex: Male

DRUGS (11)
  1. AZD6140 [Suspect]
     Indication: CORONARY ARTERY DISEASE
     Route: 048
     Dates: start: 20110818, end: 20130627
  2. AZD6140 [Suspect]
     Indication: CORONARY ARTERY DISEASE
     Route: 048
     Dates: start: 20130702, end: 20130705
  3. BAYASPIRIN [Suspect]
     Route: 048
     Dates: end: 20130627
  4. BAYASPIRIN [Suspect]
     Route: 048
     Dates: start: 20130702, end: 20130705
  5. FLUITRAN [Concomitant]
     Indication: HYPERTENSION
     Route: 048
     Dates: end: 20130627
  6. FAMOTIDINE D [Concomitant]
     Indication: PROPHYLAXIS AGAINST GASTROINTESTINAL ULCER
     Route: 048
     Dates: end: 20130627
  7. OLMETEC [Concomitant]
     Indication: HYPERTENSION
     Route: 048
     Dates: end: 20130627
  8. LIVALO [Concomitant]
     Indication: HYPERLIPIDAEMIA
     Route: 048
     Dates: end: 20130627
  9. ZETIA [Concomitant]
     Indication: HYPERLIPIDAEMIA
     Route: 048
     Dates: start: 20121129, end: 20130627
  10. CALBLOCK [Concomitant]
     Indication: HYPERTENSION
     Route: 048
     Dates: start: 20110819, end: 20130627
  11. SALOBEL [Concomitant]
     Indication: HYPERURICAEMIA
     Route: 048
     Dates: start: 20120607, end: 20130627

REACTIONS (1)
  - Adenocarcinoma gastric [Not Recovered/Not Resolved]
